FAERS Safety Report 10548972 (Version 1)
Quarter: 2014Q4

REPORT INFORMATION
  Report Type: Spontaneous
  Country: US (occurrence: US)
  Receive Date: 20141028
  Receipt Date: 20141028
  Transmission Date: 20150529
  Serious: Yes (Hospitalization, Other)
  Sender: FDA-Public Use
  Company Number: US-CELGENE-USA-2014103372

PATIENT
  Sex: Female

DRUGS (2)
  1. POMALYST [Suspect]
     Active Substance: POMALIDOMIDE
     Indication: PLASMA CELL MYELOMA
     Route: 048
     Dates: start: 20130510
  2. POMALYST [Suspect]
     Active Substance: POMALIDOMIDE
     Route: 048
     Dates: start: 201308

REACTIONS (2)
  - Pulmonary embolism [Unknown]
  - Ulcer haemorrhage [Recovered/Resolved]

NARRATIVE: CASE EVENT DATE: 2014
